FAERS Safety Report 12868992 (Version 1)
Quarter: 2016Q4

REPORT INFORMATION
  Report Type: Spontaneous
  Country: US (occurrence: US)
  Receive Date: 20161021
  Receipt Date: 20161021
  Transmission Date: 20170207
  Serious: No
  Sender: FDA-Public Use
  Company Number: US-PFIZER INC-2016490086

PATIENT
  Sex: Female

DRUGS (12)
  1. ARIMIDEX [Suspect]
     Active Substance: ANASTROZOLE
     Indication: BREAST CANCER METASTATIC
     Dosage: UNK
  2. FASLODEX [Suspect]
     Active Substance: FULVESTRANT
     Indication: BREAST CANCER METASTATIC
     Dosage: UNK
  3. ARIMIDEX [Suspect]
     Active Substance: ANASTROZOLE
     Indication: METASTASES TO LIVER
  4. FASLODEX [Suspect]
     Active Substance: FULVESTRANT
     Indication: METASTASES TO LIVER
  5. ADRIAMYCIN [Suspect]
     Active Substance: DOXORUBICIN HYDROCHLORIDE
     Indication: BREAST CANCER METASTATIC
     Dosage: UNK, WEEKLY
  6. FEMARA [Suspect]
     Active Substance: LETROZOLE
     Indication: BREAST CANCER METASTATIC
     Dosage: UNK
  7. FEMARA [Suspect]
     Active Substance: LETROZOLE
     Indication: METASTASES TO LIVER
  8. FASLODEX [Suspect]
     Active Substance: FULVESTRANT
     Indication: METASTASES TO BONE
  9. FEMARA [Suspect]
     Active Substance: LETROZOLE
     Indication: METASTASES TO BONE
  10. ADRIAMYCIN [Suspect]
     Active Substance: DOXORUBICIN HYDROCHLORIDE
     Indication: METASTASES TO LIVER
  11. ADRIAMYCIN [Suspect]
     Active Substance: DOXORUBICIN HYDROCHLORIDE
     Indication: METASTASES TO BONE
  12. ARIMIDEX [Suspect]
     Active Substance: ANASTROZOLE
     Indication: METASTASES TO BONE

REACTIONS (1)
  - Neoplasm progression [Unknown]
